FAERS Safety Report 7590373-3 (Version None)
Quarter: 2011Q3

REPORT INFORMATION
  Report Type: 
  Country: None (occurrence: None)
  Receive Date: 20110705
  Receipt Date: 20110629
  Transmission Date: 20111222
  Serious: Yes (Life-Threatening, Hospitalization, Other)
  Sender: FDA-Public Use
  Company Number: JP-SANOFI-AVENTIS-2011SA041290

PATIENT
  Age: 59 Year
  Sex: Male

DRUGS (11)
  1. OXALIPLATIN [Suspect]
     Route: 041
     Dates: start: 20110126, end: 20110126
  2. XELODA [Suspect]
     Route: 048
     Dates: start: 20110126, end: 20110217
  3. GRANISETRON [Concomitant]
     Dates: start: 20110105
  4. XELODA [Suspect]
     Indication: RECTAL CANCER RECURRENT
     Route: 048
     Dates: start: 20110105
  5. DEXAMETHASONE [Concomitant]
     Dates: start: 20110105
  6. OXALIPLATIN [Suspect]
     Route: 041
     Dates: start: 20110105, end: 20110105
  7. AVASTIN [Suspect]
     Indication: RECTAL CANCER
     Route: 041
     Dates: start: 20110105, end: 20110105
  8. AVASTIN [Suspect]
     Route: 041
     Dates: start: 20110126, end: 20110126
  9. OXALIPLATIN [Suspect]
     Route: 041
     Dates: start: 20110217, end: 20110217
  10. AVASTIN [Suspect]
     Route: 041
     Dates: start: 20110217, end: 20110217
  11. THERAPEUTIC RADIOPHARMACEUTICALS [Suspect]
     Indication: RECTAL CANCER RECURRENT
     Dosage: TOTAL DOSE 30 GY
     Route: 065
     Dates: start: 20101220, end: 20110107

REACTIONS (9)
  - NEUTROPENIA [None]
  - PNEUMONIA ASPIRATION [None]
  - SYSTEMIC CANDIDA [None]
  - VOMITING [None]
  - PLATELET COUNT DECREASED [None]
  - RENAL FAILURE [None]
  - DEHYDRATION [None]
  - NEUROPATHY PERIPHERAL [None]
  - DIARRHOEA [None]
